FAERS Safety Report 15614922 (Version 1)
Quarter: 2018Q4

REPORT INFORMATION
  Report Type: Spontaneous
  Country: FR (occurrence: FR)
  Receive Date: 20181114
  Receipt Date: 20181114
  Transmission Date: 20190205
  Serious: Yes (Hospitalization)
  Sender: FDA-Public Use
  Company Number: FR-ABBVIE-18K-056-2552828-00

PATIENT
  Age: 53 Year
  Sex: Male

DRUGS (2)
  1. VFEND [Concomitant]
     Active Substance: VORICONAZOLE
     Indication: PRODUCT USED FOR UNKNOWN INDICATION
  2. VENETOCLAX. [Suspect]
     Active Substance: VENETOCLAX
     Indication: CHRONIC LYMPHOCYTIC LEUKAEMIA
     Dosage: W1 - 20 MG??W2 - 50 MG??W3 - 100 MG??AFTER 150 MG
     Route: 048
     Dates: start: 2018, end: 2018

REACTIONS (2)
  - Fatigue [Unknown]
  - Haemoptysis [Unknown]

NARRATIVE: CASE EVENT DATE: 2018
